FAERS Safety Report 7407151-8 (Version None)
Quarter: 2011Q2

REPORT INFORMATION
  Report Type: 
  Country: None (occurrence: None)
  Receive Date: 20110411
  Receipt Date: 20110316
  Transmission Date: 20111010
  Serious: No
  Sender: FDA-Public Use
  Company Number: US-B.I. PHARMACEUTICALS,INC./RIDGEFIELD-2011-BP-08441BP

PATIENT
  Sex: Female

DRUGS (1)
  1. ATROVENT HFA [Suspect]
     Indication: CHRONIC OBSTRUCTIVE PULMONARY DISEASE
     Dosage: 136 MCG
     Route: 055
     Dates: start: 20110315

REACTIONS (2)
  - LUNG DISORDER [None]
  - BACK PAIN [None]
